FAERS Safety Report 11093531 (Version 2)
Quarter: 2015Q2

REPORT INFORMATION
  Report Type: Report from Study
  Country: FR (occurrence: FR)
  Receive Date: 20150506
  Receipt Date: 20150508
  Transmission Date: 20150821
  Serious: Yes (Other)
  Sender: FDA-Public Use
  Company Number: FR-MERCK-1503FRA005101

PATIENT
  Age: 55 Year
  Sex: Female
  Weight: 47 kg

DRUGS (4)
  1. NOCTAMIDE [Concomitant]
     Active Substance: LORMETAZEPAM
     Indication: INSOMNIA
     Dosage: START DATE: BEFORE 2014, TOTAL DAILY DOSE: 0.5 MG(1/4 TABLETS), FREQUENCY: EVENING
     Route: 048
  2. PEMBROLIZUMAB. [Suspect]
     Active Substance: PEMBROLIZUMAB
     Indication: MALIGNANT MELANOMA STAGE IV
     Dosage: 2 MG/KG, Q3W (TOTAL DAILY DOSE:96 MG)
     Route: 042
     Dates: start: 20150216, end: 20150309
  3. PEMBROLIZUMAB. [Suspect]
     Active Substance: PEMBROLIZUMAB
     Dosage: 2 MG/KG, Q3W(TOTAL DAILY DOSE:96 MG)
     Route: 042
     Dates: start: 20150330, end: 20150330
  4. ATENOLOL. [Concomitant]
     Active Substance: ATENOLOL
     Indication: HYPERTENSION
     Dosage: START DATE: BEFORE 2014, TOTAL DAILY DOSE: HALF TABLET, 25 MG
     Route: 048

REACTIONS (6)
  - Dyspepsia [Unknown]
  - Tenosynovitis [Unknown]
  - Skin toxicity [Recovered/Resolved]
  - Pruritus [Recovered/Resolved]
  - Liver disorder [Recovered/Resolved]
  - Mucosal erosion [Unknown]

NARRATIVE: CASE EVENT DATE: 20150226
